FAERS Safety Report 5545245-2 (Version None)
Quarter: 2007Q4

REPORT INFORMATION
  Report Type: 
  Country: None (occurrence: None)
  Receive Date: 20071121
  Receipt Date: 20070302
  Transmission Date: 20080405
  Serious: Yes (Hospitalization, Disabling)
  Sender: FDA-Public Use
  Company Number: 2007-BP-01825BP

PATIENT
  Age: 79 Year
  Sex: Male

DRUGS (12)
  1. AGGRENOX [Suspect]
     Indication: CEREBROVASCULAR ACCIDENT PROPHYLAXIS
     Dosage: (25MG/200MG, 1 CAPSULE BID), PO
     Route: 048
     Dates: start: 20060901, end: 20070206
  2. ZOCOR [Suspect]
     Indication: BLOOD CHOLESTEROL INCREASED
     Dosage: 80 MG
     Dates: end: 20070206
  3. FLOMAX [Concomitant]
  4. DIGOXIN [Concomitant]
  5. GLIPIZIDE [Concomitant]
  6. NEURONTIN [Concomitant]
  7. BETHANECHOL (BETHANECHOL) [Concomitant]
  8. PROTONIX [Concomitant]
  9. METOPROLOL TARTRATE [Concomitant]
  10. TIZANIDINE HCL [Concomitant]
  11. PLETAL [Concomitant]
  12. SIMVASTATIN [Concomitant]

REACTIONS (2)
  - PAIN IN EXTREMITY [None]
  - RHABDOMYOLYSIS [None]
